FAERS Safety Report 5336693-4 (Version None)
Quarter: 2007Q2

REPORT INFORMATION
  Report Type: 
  Country: None (occurrence: None)
  Receive Date: 20070524
  Receipt Date: 20070524
  Transmission Date: 20071010
  Serious: Yes (Other)
  Sender: FDA-Public Use
  Company Number: None

PATIENT
  Age: 47 Year
  Sex: Female
  Weight: 83.9154 kg

DRUGS (1)
  1. LOVASTATIN [Suspect]
     Indication: BLOOD CHOLESTEROL INCREASED
     Dosage: 1 DAILY PO
     Route: 048
     Dates: start: 20070515, end: 20070521

REACTIONS (6)
  - ABDOMINAL PAIN UPPER [None]
  - MUSCLE INJURY [None]
  - MYOGLOBINURIA [None]
  - MYOPATHY [None]
  - MYOSITIS [None]
  - RHABDOMYOLYSIS [None]
